FAERS Safety Report 18358116 (Version 1)
Quarter: 2020Q4

REPORT INFORMATION
  Report Type: Spontaneous
  Country: CN (occurrence: CN)
  Receive Date: 20201007
  Receipt Date: 20201007
  Transmission Date: 20210114
  Serious: Yes (Hospitalization, Other)
  Sender: FDA-Public Use
  Company Number: CN-BAXTER-2020BAX020352

PATIENT
  Age: 50 Year
  Sex: Female
  Weight: 46 kg

DRUGS (12)
  1. 0.9% SODIUM CHLORIDE INJECTION [Suspect]
     Active Substance: SODIUM CHLORIDE
     Dosage: THIRD COURSE OF AC-T REGIMEN, ENDOXAN 0.8 G + NS 500 ML
     Route: 041
     Dates: start: 20200906, end: 20200906
  2. PIRARUBICIN HYDROCHLORIDE [Suspect]
     Active Substance: PIRARUBICIN HYDROCHLORIDE
     Indication: BREAST CANCER FEMALE
     Dosage: FIRST AND SECOND COURSE OF AC-T REGIMEN, PIRARUBICIN HYDROCHLORIDE + GS
     Route: 041
  3. 5% GLUCOSE  INJECTION [Suspect]
     Active Substance: DEXTROSE
     Dosage: DOSE RE-INTRODUCED, PIRARUBICIN HYDROCHLORIDE + GS
     Route: 041
     Dates: start: 202009
  4. 0.9% SODIUM CHLORIDE INJECTION [Suspect]
     Active Substance: SODIUM CHLORIDE
     Dosage: DOSE RE-INTRODUCED, ENDOXAN + NS
     Route: 041
     Dates: start: 202009
  5. 5% GLUCOSE  INJECTION [Suspect]
     Active Substance: DEXTROSE
     Dosage: THIRD COURSE OF AC-T REGIMEN, PIRARUBICIN HYDROCHLORIDE 80 MG + GS 100 ML
     Route: 041
     Dates: start: 20200906, end: 20200906
  6. ENDOXAN [Suspect]
     Active Substance: CYCLOPHOSPHAMIDE
     Dosage: THIRD COURSE OF AC-T REGIMEN, ENDOXAN 0.8 G + NS 500 ML
     Route: 041
     Dates: start: 20200906, end: 20200906
  7. ENDOXAN [Suspect]
     Active Substance: CYCLOPHOSPHAMIDE
     Dosage: DOSE RE-INTRODUCED, ENDOXAN + NS
     Route: 041
     Dates: start: 202009
  8. 5% GLUCOSE  INJECTION [Suspect]
     Active Substance: DEXTROSE
     Indication: MEDICATION DILUTION
     Dosage: FIRST AND SECOND COURSE OF AC-T REGIMEN, PIRARUBICIN HYDROCHLORIDE + GS
     Route: 041
  9. PIRARUBICIN HYDROCHLORIDE [Suspect]
     Active Substance: PIRARUBICIN HYDROCHLORIDE
     Dosage: DOSE RE-INTRODUCED, PIRARUBICIN HYDROCHLORIDE + GS
     Route: 041
     Dates: start: 202009
  10. ENDOXAN [Suspect]
     Active Substance: CYCLOPHOSPHAMIDE
     Indication: BREAST CANCER FEMALE
     Dosage: FIRST AND SECOND COURSE OF AC-T REGIMEN, ENDOXAN + NS
     Route: 041
  11. 0.9% SODIUM CHLORIDE INJECTION [Suspect]
     Active Substance: SODIUM CHLORIDE
     Indication: MEDICATION DILUTION
     Dosage: FIRST AND SECOND COURSE OF AC-T REGIMEN, ENDOXAN + NS
     Route: 041
  12. PIRARUBICIN HYDROCHLORIDE [Suspect]
     Active Substance: PIRARUBICIN HYDROCHLORIDE
     Dosage: THIRD COURSE OF AC-T REGIMEN, PIRARUBICIN HYDROCHLORIDE 80 MG + GS 100 ML
     Route: 041
     Dates: start: 20200906, end: 20200906

REACTIONS (3)
  - Leukopenia [Unknown]
  - Neutrophil count decreased [Unknown]
  - Myelosuppression [Unknown]

NARRATIVE: CASE EVENT DATE: 20200908
